FAERS Safety Report 18515787 (Version 1)
Quarter: 2020Q4

REPORT INFORMATION
  Report Type: Spontaneous
  Country: US (occurrence: US)
  Receive Date: 20201117
  Receipt Date: 20201117
  Transmission Date: 20210114
  Serious: Yes (Disabling, Other)
  Sender: FDA-Public Use
  Company Number: None

PATIENT
  Age: 22 Year
  Sex: Female
  Weight: 51.75 kg

DRUGS (5)
  1. REXULTI [Suspect]
     Active Substance: BREXPIPRAZOLE
     Indication: MAJOR DEPRESSION
     Dosage: ?          QUANTITY:1 TABLET(S);?
     Route: 048
     Dates: start: 20201029, end: 20201114
  2. SEROQUEL [Concomitant]
     Active Substance: QUETIAPINE FUMARATE
  3. MITOCHORE [Concomitant]
  4. VYVANSE [Concomitant]
     Active Substance: LISDEXAMFETAMINE DIMESYLATE
  5. KAVINASE [Concomitant]

REACTIONS (9)
  - Feeling abnormal [None]
  - Hallucination, visual [None]
  - Depersonalisation/derealisation disorder [None]
  - Dizziness [None]
  - Heart rate irregular [None]
  - Euphoric mood [None]
  - Tachycardia [None]
  - Dissociation [None]
  - Staring [None]

NARRATIVE: CASE EVENT DATE: 20201114
